FAERS Safety Report 5872112-7 (Version None)
Quarter: 2008Q3

REPORT INFORMATION
  Report Type: 
  Country: None (occurrence: None)
  Receive Date: 20080905
  Receipt Date: 20080904
  Transmission Date: 20090109
  Serious: Yes (Hospitalization)
  Sender: FDA-Public Use
  Company Number: B0534976A

PATIENT
  Age: 53 Year
  Sex: Male

DRUGS (3)
  1. RANIPLEX [Suspect]
     Route: 065
     Dates: start: 20080520, end: 20080705
  2. MINOCYCLINE HCL [Suspect]
     Indication: MYCOBACTERIUM MARINUM INFECTION
     Dates: start: 20080502, end: 20080705
  3. ULTRA LEVURE [Concomitant]
     Dates: start: 20080502, end: 20080705

REACTIONS (8)
  - BLOOD BILIRUBIN INCREASED [None]
  - HEADACHE [None]
  - HEPATOCELLULAR INJURY [None]
  - LEUKOPENIA [None]
  - MALAISE [None]
  - NAUSEA [None]
  - NEUTROPENIA [None]
  - VERTIGO [None]
